FAERS Safety Report 5665080-4 (Version None)
Quarter: 2008Q1

REPORT INFORMATION
  Report Type: 
  Country: None (occurrence: None)
  Receive Date: 20080314
  Receipt Date: 20080220
  Transmission Date: 20080703
  Serious: No
  Sender: FDA-Public Use
  Company Number: US-BOEHRINGER INGELHEIM GMBH, GERMANY-2008-BP-02579BP

PATIENT
  Age: 43 Year
  Sex: Female

DRUGS (2)
  1. MICARDIS [Suspect]
     Indication: HYPERTENSION
     Route: 048
     Dates: start: 20080212, end: 20080216
  2. AMBIEN [Suspect]
     Indication: INSOMNIA
     Dates: start: 20080212

REACTIONS (4)
  - DIZZINESS [None]
  - NAUSEA [None]
  - SOMNOLENCE [None]
  - VOMITING [None]
